FAERS Safety Report 17545623 (Version 1)
Quarter: 2020Q1

REPORT INFORMATION
  Report Type: Spontaneous
  Country: FR (occurrence: FR)
  Receive Date: 20200316
  Receipt Date: 20200316
  Transmission Date: 20200409
  Serious: Yes (Hospitalization)
  Sender: FDA-Public Use
  Company Number: FR-MYLANLABS-2020M1027015

PATIENT
  Age: 53 Year
  Sex: Female
  Weight: 115.85 kg

DRUGS (5)
  1. TOUJEO [Concomitant]
     Active Substance: INSULIN GLARGINE
     Indication: TYPE 2 DIABETES MELLITUS
     Dosage: 45 INTERNATIONAL UNIT, QD (100 UNIT?S/ML, SOLUTION INJECTABLE EN STYLO PR?REMPLI)
     Route: 058
  2. FLUDEX                             /00340101/ [Interacting]
     Active Substance: INDAPAMIDE
     Indication: HYPERTENSION
     Dosage: 1 DOSAGE FORM, QD
     Route: 048
     Dates: end: 202001
  3. PERINDOPRIL [Interacting]
     Active Substance: PERINDOPRIL
     Indication: HYPERTENSION
     Dosage: 10 MILLIGRAM, QD
     Route: 048
     Dates: end: 202001
  4. INDAPAMIDE. [Suspect]
     Active Substance: INDAPAMIDE
     Indication: HYPERTENSION
     Dosage: 2.5 MILLIGRAM, QD
     Route: 048
     Dates: end: 202001
  5. IMODIUM [Concomitant]
     Active Substance: LOPERAMIDE HYDROCHLORIDE
     Indication: DIARRHOEA
     Dosage: 1 DOSAGE FORM, QD
     Route: 048
     Dates: start: 202001, end: 202001

REACTIONS (3)
  - Acute kidney injury [Recovering/Resolving]
  - Drug interaction [Recovered/Resolved]
  - Hyperkalaemia [Recovering/Resolving]

NARRATIVE: CASE EVENT DATE: 20200111
